FAERS Safety Report 19882102 (Version 1)
Quarter: 2021Q3

REPORT INFORMATION
  Report Type: Spontaneous
  Country: US (occurrence: US)
  Receive Date: 20210924
  Receipt Date: 20210924
  Transmission Date: 20211014
  Serious: Yes (Other)
  Sender: FDA-Public Use
  Company Number: US-PFIZER INC-2018325258

PATIENT
  Age: 23 Year
  Sex: Female

DRUGS (8)
  1. ANTILYMPHOCYTE IMMUNOGLOBULINS [Suspect]
     Active Substance: THYMOCYTE IMMUNE GLOBULIN NOS
     Dosage: UNK, ALTERNATE DAY, (FOR 5 DAYS PRE? AND POST?TRANSPLANTATION AND THEN ON ALTERNATE DAYS)
  2. ANTILYMPHOCYTE IMMUNOGLOBULINS [Suspect]
     Active Substance: THYMOCYTE IMMUNE GLOBULIN NOS
     Dosage: 4 ML (H?LC?4 ML)
     Route: 030
  3. ANTILYMPHOCYTE IMMUNOGLOBULINS [Suspect]
     Active Substance: THYMOCYTE IMMUNE GLOBULIN NOS
     Dosage: APPROXIMATELY 100 ML OF ALG R?1
     Route: 030
  4. ANTILYMPHOCYTE IMMUNOGLOBULINS [Suspect]
     Active Substance: THYMOCYTE IMMUNE GLOBULIN NOS
     Dosage: 190 ML, UNK (H?1C?190 ML)
     Route: 030
  5. PREDNISONE. [Suspect]
     Active Substance: PREDNISONE
     Indication: IMMUNOSUPPRESSION
     Dosage: UNK
  6. ANTILYMPHOCYTE IMMUNOGLOBULINS [Suspect]
     Active Substance: THYMOCYTE IMMUNE GLOBULIN NOS
     Dosage: UNK, DAILY (2?4 ML OF ALG R?1 DAILY )
  7. ANTILYMPHOCYTE IMMUNOGLOBULINS [Suspect]
     Active Substance: THYMOCYTE IMMUNE GLOBULIN NOS
     Indication: IMMUNOSUPPRESSION
     Dosage: 2 ML, DAILY (FOR 5 DAYS PRE? AND POST?TRANSPLANTATION AND THEN ON ALTERNATE DAYS)
     Route: 030
  8. AZATHIOPRINE. [Suspect]
     Active Substance: AZATHIOPRINE
     Indication: IMMUNOSUPPRESSION
     Dosage: UNK

REACTIONS (6)
  - Drug ineffective [Unknown]
  - Off label use [Unknown]
  - Product use issue [Unknown]
  - Anti-glomerular basement membrane antibody positive [Unknown]
  - Chronic allograft nephropathy [Unknown]
  - Renal transplant failure [Unknown]
